FAERS Safety Report 10106889 (Version 2)
Quarter: 2014Q2

REPORT INFORMATION
  Report Type: Other
  Country: US (occurrence: US)
  Receive Date: 20140424
  Receipt Date: 20140623
  Transmission Date: 20141212
  Serious: Yes (Death, Other)
  Sender: FDA-Public Use
  Company Number: US-GSKPPD-2014GSK002283

PATIENT
  Age: 72 Year
  Sex: Female
  Weight: 92.16 kg

DRUGS (5)
  1. AVANDIA [Suspect]
     Indication: DIABETES MELLITUS
     Route: 048
     Dates: start: 2006
  2. AVANDAMET [Suspect]
     Indication: DIABETES MELLITUS
     Dosage: 4 MG/500 MG
     Route: 048
     Dates: start: 20070222
  3. COUMADIN [Concomitant]
  4. LIPITOR [Concomitant]
  5. LISINOPRIL [Concomitant]

REACTIONS (2)
  - Myocardial infarction [None]
  - Cardiac failure congestive [Fatal]
